FAERS Safety Report 23775636 (Version 5)
Quarter: 2024Q4

REPORT INFORMATION
  Report Type: Spontaneous
  Country: US (occurrence: US)
  Receive Date: 20240423
  Receipt Date: 20241018
  Transmission Date: 20250115
  Serious: Yes (Other)
  Sender: CSL BEHRING
  Company Number: US-BEH-2024170736

PATIENT
  Age: 64 Year
  Sex: Female

DRUGS (41)
  1. HIZENTRA [Suspect]
     Active Substance: HUMAN IMMUNOGLOBULIN G
     Indication: Immunodeficiency
     Dosage: 10 G (50 ML), QW
     Route: 058
  2. HIZENTRA [Suspect]
     Active Substance: HUMAN IMMUNOGLOBULIN G
     Dosage: 10 G (50 ML), QW
     Route: 058
     Dates: start: 20240409
  3. HIZENTRA [Suspect]
     Active Substance: HUMAN IMMUNOGLOBULIN G
     Dosage: 2 G (10 ML), QW
     Route: 058
     Dates: start: 20240621
  4. ALBUTEROL [Concomitant]
     Active Substance: ALBUTEROL
  5. AZELASTINE [Concomitant]
     Active Substance: AZELASTINE
  6. AZITHROMYCIN [Concomitant]
     Active Substance: AZITHROMYCIN
  7. CYCLOBENZAPRINE [Concomitant]
     Active Substance: CYCLOBENZAPRINE
  8. CYMBALTA [Concomitant]
     Active Substance: DULOXETINE HYDROCHLORIDE
  9. DOXYCYCLINE HYCLATE [Concomitant]
     Active Substance: DOXYCYCLINE HYCLATE
  10. ELIQUIS [Concomitant]
     Active Substance: APIXABAN
  11. EPINEPHRINE [Concomitant]
     Active Substance: EPINEPHRINE
  12. FLUTICASONE [Concomitant]
     Active Substance: FLUTICASONE
  13. HYDROCODONE BITARTRATE AND ACETAMINOPHEN [Concomitant]
     Active Substance: ACETAMINOPHEN\HYDROCODONE BITARTRATE
  14. METFORMIN [Concomitant]
     Active Substance: METFORMIN HYDROCHLORIDE
  15. NUCALA [Concomitant]
     Active Substance: MEPOLIZUMAB
  16. OMEPRAZOLE [Concomitant]
     Active Substance: OMEPRAZOLE
  17. PREDNISONE [Concomitant]
     Active Substance: PREDNISONE
  18. PREDNISONE [Concomitant]
     Active Substance: PREDNISONE
  19. RYBELSUS [Concomitant]
     Active Substance: SEMAGLUTIDE
  20. Triamcinolon [Concomitant]
  21. VITAMIN D [Concomitant]
     Active Substance: VITAMIN D NOS
  22. BENADRYL [Concomitant]
     Active Substance: DIPHENHYDRAMINE HYDROCHLORIDE
     Indication: Premedication
  23. BENADRYL [Concomitant]
     Active Substance: DIPHENHYDRAMINE HYDROCHLORIDE
     Indication: Premedication
  24. TYLENOL [Concomitant]
     Active Substance: ACETAMINOPHEN
     Indication: Premedication
  25. TYLENOL [Concomitant]
     Active Substance: ACETAMINOPHEN
     Indication: Premedication
  26. FASENRA [Concomitant]
     Active Substance: BENRALIZUMAB
  27. CEFUROXIME [Concomitant]
     Active Substance: CEFUROXIME
  28. CETIRIZINE HYDROCHLORIDE [Concomitant]
     Active Substance: CETIRIZINE HYDROCHLORIDE
  29. HYDROCORTISONE [Concomitant]
     Active Substance: HYDROCORTISONE
  30. DULOXETINE +PHARMA [Concomitant]
  31. LIDOCAINE AND PRILOCAINE [Concomitant]
     Active Substance: LIDOCAINE\PRILOCAINE
  32. LISINOPRIL [Concomitant]
     Active Substance: LISINOPRIL
  33. NITROFURANTOIN [Concomitant]
     Active Substance: NITROFURANTOIN
  34. MUPIROCINA DERMOGEN [Concomitant]
  35. NYSTATIN [Concomitant]
     Active Substance: NYSTATIN
  36. OLOPATADINE [Concomitant]
     Active Substance: OLOPATADINE
  37. RYBELSUS [Concomitant]
     Active Substance: SEMAGLUTIDE
  38. SODIUM CHLORIDE [Concomitant]
     Active Substance: SODIUM CHLORIDE
  39. SPORANOX [Concomitant]
     Active Substance: ITRACONAZOLE
  40. TRELEGY ELLIPTA [Concomitant]
     Active Substance: FLUTICASONE FUROATE\UMECLIDINIUM BROMIDE\VILANTEROL TRIFENATATE
  41. PREDNISONE [Concomitant]
     Active Substance: PREDNISONE

REACTIONS (10)
  - Condition aggravated [Unknown]
  - Pain [Unknown]
  - Injection site swelling [Recovered/Resolved]
  - Infusion site swelling [Unknown]
  - Infusion site pruritus [Unknown]
  - Product prescribing issue [Unknown]
  - Product dose omission issue [Unknown]
  - Pain [Unknown]
  - Infusion site swelling [Unknown]
  - Pain [Unknown]

NARRATIVE: CASE EVENT DATE: 20240501
